FAERS Safety Report 7780129-0 (Version None)
Quarter: 2011Q3

REPORT INFORMATION
  Report Type: 
  Country: None (occurrence: None)
  Receive Date: 20110922
  Receipt Date: 20110907
  Transmission Date: 20111222
  Serious: Yes (Other)
  Sender: FDA-Public Use
  Company Number: 1000020926

PATIENT
  Age: 80 Year
  Sex: Female

DRUGS (1)
  1. MEMANTINE HYDROCHLORIDE [Suspect]

REACTIONS (2)
  - URINARY TRACT INFECTION [None]
  - GENERAL PHYSICAL HEALTH DETERIORATION [None]
